FAERS Safety Report 7391571 (Version 3)
Quarter: 2013Q4

REPORT INFORMATION
  Report Type: Spontaneous
  Country: PL (occurrence: PL)
  Receive Date: 20100518
  Receipt Date: 20131209
  Transmission Date: 20140711
  Serious: Yes (Death)
  Sender: FDA-Public Use
  Company Number: PL-ROCHE-701360

PATIENT
  Age: 34 Year
  Sex: Male
  Weight: 84 kg

DRUGS (9)
  1. AVASTIN [Suspect]
     Indication: COLORECTAL CANCER METASTATIC
     Dosage: FREQUECY: 1 ADMINISTRATION (90 MIN)
     Route: 042
     Dates: start: 20100422, end: 20100422
  2. IRINOTECAN [Concomitant]
     Indication: COLORECTAL CANCER METASTATIC
     Dosage: FREQUENCY 1 X DAY (2 H)
     Route: 042
     Dates: start: 20100422, end: 20100422
  3. ZOFRAN [Concomitant]
     Indication: ANTIEMETIC SUPPORTIVE CARE
     Route: 042
     Dates: start: 20100422, end: 20100422
  4. DEXAMETHASONE [Concomitant]
     Route: 042
  5. ATROPIN [Concomitant]
     Route: 058
  6. AUGMENTIN [Concomitant]
     Route: 065
     Dates: start: 20100422, end: 20100422
  7. ZANTAC [Concomitant]
     Indication: PROPHYLAXIS
     Dosage: FREQUENCY: EVERY 12 HOUR
     Route: 040
  8. FOLINIC ACID [Concomitant]
     Route: 065
  9. 5-FLUOROURACIL [Concomitant]
     Route: 065

REACTIONS (6)
  - Dyspnoea [Fatal]
  - Blood pressure increased [Fatal]
  - Cardiovascular disorder [Fatal]
  - Lividity [Fatal]
  - Cor pulmonale [Fatal]
  - Pulmonary embolism [Fatal]
